FAERS Safety Report 7997750-7 (Version None)
Quarter: 2011Q4

REPORT INFORMATION
  Report Type: 
  Country: None (occurrence: None)
  Receive Date: 20111221
  Receipt Date: 20111219
  Transmission Date: 20120403
  Serious: No
  Sender: FDA-Public Use
  Company Number: US-BAYER-2011-122136

PATIENT
  Age: 39 Year
  Sex: Female

DRUGS (1)
  1. GADAVIST [Suspect]
     Indication: NUCLEAR MAGNETIC RESONANCE IMAGING BRAIN
     Dosage: 11 ML, ONCE
     Route: 042
     Dates: start: 20111219, end: 20111219

REACTIONS (4)
  - DYSPNOEA [None]
  - NAUSEA [None]
  - THROAT IRRITATION [None]
  - COUGH [None]
